FAERS Safety Report 8212772-9 (Version None)
Quarter: 2012Q1

REPORT INFORMATION
  Report Type: 
  Country: None (occurrence: None)
  Receive Date: 20120315
  Receipt Date: 20120305
  Transmission Date: 20120608
  Serious: Yes (Hospitalization)
  Sender: FDA-Public Use
  Company Number: IT-BRISTOL-MYERS SQUIBB COMPANY-16434722

PATIENT
  Age: 83 Year
  Sex: Male

DRUGS (8)
  1. COUMADIN [Suspect]
     Indication: CARDIOVASCULAR EVENT PROPHYLAXIS
     Dosage: 1 DOSE
     Route: 048
     Dates: start: 20100101, end: 20120214
  2. SIMVASTATIN [Concomitant]
     Indication: HYPERCHOLESTEROLAEMIA
     Dosage: 1 DOSE
     Route: 048
  3. DIFIX [Concomitant]
     Indication: RENAL OSTEODYSTROPHY
  4. METOPROLOL TARTRATE [Concomitant]
     Indication: HYPERTENSION
     Route: 048
  5. NORVASC [Concomitant]
     Indication: HYPERTENSION
     Dosage: 1 DOSE
     Route: 048
  6. RENVELA [Concomitant]
     Indication: RENAL FAILURE CHRONIC
     Dosage: 1 DOSE
     Route: 048
  7. LASIX [Concomitant]
     Indication: RENAL FAILURE CHRONIC
     Dosage: 1 DOSE
     Route: 048
  8. FERRO-GRADUMET [Concomitant]
     Indication: IRON DEFICIENCY
     Dosage: 1 DOSE
     Route: 048

REACTIONS (2)
  - HEAD INJURY [None]
  - HAEMORRHAGE INTRACRANIAL [None]
